FAERS Safety Report 11278637 (Version 2)
Quarter: 2015Q3

REPORT INFORMATION
  Report Type: Spontaneous
  Country: US (occurrence: US)
  Receive Date: 20150717
  Receipt Date: 20150811
  Transmission Date: 20151125
  Serious: No
  Sender: FDA-Public Use
  Company Number: US-BAYER-2015-381161

PATIENT
  Age: 79 Year
  Sex: Male
  Weight: 100 kg

DRUGS (1)
  1. MIRALAX [Suspect]
     Active Substance: POLYETHYLENE GLYCOL 3350
     Indication: CONSTIPATION
     Dosage: 1 DOSE, QD
     Route: 048
     Dates: start: 2014

REACTIONS (2)
  - Product use issue [Unknown]
  - Renal disorder [None]

NARRATIVE: CASE EVENT DATE: 2014
